FAERS Safety Report 24167421 (Version 1)
Quarter: 2024Q3

REPORT INFORMATION
  Report Type: Spontaneous
  Country: US (occurrence: US)
  Receive Date: 20240802
  Receipt Date: 20240802
  Transmission Date: 20241016
  Serious: No
  Sender: MYLAN
  Company Number: US-MYLANLABS-2024M1069121

PATIENT

DRUGS (1)
  1. PROCTOFOAM HC [Suspect]
     Active Substance: HYDROCORTISONE ACETATE\PRAMOXINE HYDROCHLORIDE
     Indication: Product used for unknown indication
     Dosage: 1 PERCENT, QD (ONCE DAILY)
     Route: 054
     Dates: start: 20240716

REACTIONS (2)
  - Off label use [Unknown]
  - Device delivery system issue [Unknown]
